FAERS Safety Report 4891756-2 (Version None)
Quarter: 2006Q1

REPORT INFORMATION
  Report Type: 
  Country: None (occurrence: None)
  Receive Date: 20060125
  Receipt Date: 20060113
  Transmission Date: 20060701
  Serious: Yes (Other)
  Sender: FDA-Public Use
  Company Number: US-SANOFI-SYNTHELABO-A03200600346

PATIENT
  Age: 57 Year
  Sex: Male

DRUGS (1)
  1. PLAVIX [Suspect]
     Indication: DRUG USE FOR UNKNOWN INDICATION
     Dosage: 600 MG LOADING DOSE FOLLOWED BY 75 MG DAILYE THERAFTER
     Route: 048
     Dates: start: 20051101, end: 20051201

REACTIONS (2)
  - EFFUSION [None]
  - POLYARTHRITIS [None]
